FAERS Safety Report 9529448 (Version 2)
Quarter: 2013Q3

REPORT INFORMATION
  Report Type: Report from Study
  Country: IL (occurrence: IL)
  Receive Date: 20130917
  Receipt Date: 20130920
  Transmission Date: 20140515
  Serious: Yes (Hospitalization)
  Sender: FDA-Public Use
  Company Number: PHHO2013IL011675

PATIENT
  Sex: 0

DRUGS (6)
  1. ACZ885 [Suspect]
     Indication: JUVENILE IDIOPATHIC ARTHRITIS
     Dosage: 4 MG/KG, UNK
     Route: 058
     Dates: start: 20120719, end: 20130811
  2. ACZ885 [Suspect]
     Dosage: UNK
     Dates: start: 20130917
  3. PREDNISONE [Concomitant]
     Indication: JUVENILE IDIOPATHIC ARTHRITIS
     Dosage: 1 MG, UNK
     Dates: start: 20130811, end: 20130903
  4. PREDNISONE [Concomitant]
     Dosage: 10 MG, QD
     Dates: start: 20130904, end: 20130906
  5. PREDNISONE [Concomitant]
     Dosage: 30 MG, BID
     Dates: start: 20130906, end: 20130908
  6. PREDNISONE [Concomitant]
     Dosage: 25 MG, QD
     Dates: start: 20130908

REACTIONS (6)
  - Pyrexia [Recovered/Resolved]
  - Leukopenia [Recovered/Resolved]
  - Neutropenia [Recovered/Resolved]
  - Thrombocytopenia [Recovered/Resolved]
  - Hepatic enzyme increased [Recovered/Resolved]
  - Escherichia urinary tract infection [Recovered/Resolved]
